FAERS Safety Report 6094958-5 (Version None)
Quarter: 2009Q1

REPORT INFORMATION
  Report Type: 
  Country: None (occurrence: None)
  Receive Date: 20090227
  Receipt Date: 20090217
  Transmission Date: 20090719
  Serious: Yes (Other)
  Sender: FDA-Public Use
  Company Number: MY-PFIZER INC-2009173186

PATIENT

DRUGS (4)
  1. SULPERAZON [Suspect]
     Indication: INFECTION
     Dosage: UNK
     Route: 048
     Dates: start: 20080421
  2. MEPERIDINE HCL [Concomitant]
  3. RANITIDINE [Concomitant]
  4. HUMAN ALBUMIN ^BEHRING^ [Concomitant]

REACTIONS (3)
  - PRURITUS [None]
  - RASH ERYTHEMATOUS [None]
  - URTICARIA [None]
